FAERS Safety Report 8555442 (Version 3)
Quarter: 2013Q4

REPORT INFORMATION
  Report Type: Spontaneous
  Country: GB (occurrence: GB)
  Receive Date: 20120510
  Receipt Date: 20131008
  Transmission Date: 20140711
  Serious: Yes (Other)
  Sender: FDA-Public Use
  Company Number: GB-PFIZER INC-2012111725

PATIENT
  Age: 57 Year
  Sex: Male

DRUGS (4)
  1. RAMIPRIL [Suspect]
     Indication: HYPERTENSION
     Dosage: 2.5 MG, 1X/DAY
     Route: 048
  2. AMLODIPINE [Concomitant]
     Indication: HYPERTENSION
     Dosage: 10 MG, 1X/DAY
     Route: 048
  3. TEGRETOL [Concomitant]
     Indication: EPILEPSY
     Dosage: 400 MG, 2X/DAY
     Route: 048
  4. TOPIRAMATE [Concomitant]
     Indication: EPILEPSY
     Dosage: 50 MG, 2X/DAY
     Route: 048

REACTIONS (1)
  - Epilepsy [Unknown]
